FAERS Safety Report 6656423-3 (Version None)
Quarter: 2010Q1

REPORT INFORMATION
  Report Type: 
  Country: None (occurrence: None)
  Receive Date: 20100326
  Receipt Date: 20100326
  Transmission Date: 20100710
  Serious: No
  Sender: FDA-Public Use
  Company Number: None

PATIENT
  Age: 64 Year
  Sex: Male
  Weight: 106.8 kg

DRUGS (1)
  1. SIMCOR [Suspect]
     Indication: BLOOD CHOLESTEROL INCREASED
     Dosage: 500MG/20MG DAILY ORAL
     Route: 048
     Dates: start: 20100315, end: 20100317

REACTIONS (3)
  - FEELING HOT [None]
  - PAIN [None]
  - RASH MACULO-PAPULAR [None]
